FAERS Safety Report 8099501-7 (Version None)
Quarter: 2012Q1

REPORT INFORMATION
  Report Type: 
  Country: None (occurrence: None)
  Receive Date: 20120129
  Receipt Date: 20110923
  Transmission Date: 20120608
  Serious: No
  Sender: FDA-Public Use
  Company Number: US-ABBOTT-11P-163-0855247-00

PATIENT
  Age: 48 Year
  Sex: Female

DRUGS (6)
  1. VITAMIN TAB [Concomitant]
     Indication: PRODUCT USED FOR UNKNOWN INDICATION
     Dosage: DAILY
  2. HUMIRA [Suspect]
     Indication: RHEUMATOID ARTHRITIS
     Dates: start: 20110801
  3. LIPITOR [Concomitant]
     Indication: PRODUCT USED FOR UNKNOWN INDICATION
  4. METHOTREXATE [Concomitant]
     Indication: PRODUCT USED FOR UNKNOWN INDICATION
  5. FOLIC ACID [Concomitant]
     Indication: PRODUCT USED FOR UNKNOWN INDICATION
  6. BUSPAR [Concomitant]
     Indication: PRODUCT USED FOR UNKNOWN INDICATION

REACTIONS (9)
  - MYALGIA [None]
  - ALOPECIA [None]
  - EYE PAIN [None]
  - PAIN [None]
  - ARTHRALGIA [None]
  - DRUG INEFFECTIVE [None]
  - HYPERHIDROSIS [None]
  - GAIT DISTURBANCE [None]
  - OCULAR HYPERAEMIA [None]
